FAERS Safety Report 23027704 (Version 1)
Quarter: 2023Q4

REPORT INFORMATION
  Report Type: Spontaneous
  Country: US (occurrence: US)
  Receive Date: 20231004
  Receipt Date: 20231004
  Transmission Date: 20240110
  Serious: No
  Sender: FDA-Public Use
  Company Number: US-TG THERAPEUTICS INC.-TGT002922

PATIENT
  Age: 38 Year
  Sex: Male
  Weight: 73.923 kg

DRUGS (2)
  1. BRIUMVI [Suspect]
     Active Substance: UBLITUXIMAB-XIIY
     Indication: Multiple sclerosis
     Dosage: UNK
     Route: 042
     Dates: start: 2023, end: 2023
  2. BRIUMVI [Suspect]
     Active Substance: UBLITUXIMAB-XIIY
     Dosage: UNK
     Route: 042
     Dates: start: 2023, end: 2023

REACTIONS (8)
  - Night sweats [Unknown]
  - Muscle spasms [Unknown]
  - Headache [Unknown]
  - Diarrhoea [Unknown]
  - Muscle spasms [Unknown]
  - Weight decreased [Unknown]
  - Pain in extremity [Unknown]
  - Therapeutic response unexpected [Unknown]

NARRATIVE: CASE EVENT DATE: 20230101
